FAERS Safety Report 9747875 (Version 2)
Quarter: 2013Q4

REPORT INFORMATION
  Report Type: Spontaneous
  Country: US (occurrence: US)
  Receive Date: 20131212
  Receipt Date: 20131212
  Transmission Date: 20140711
  Serious: Yes (Hospitalization)
  Sender: FDA-Public Use
  Company Number: US-TEVA-385176USA

PATIENT
  Age: 25 Year
  Sex: Female
  Weight: 52.21 kg

DRUGS (3)
  1. PARAGARD 380A [Suspect]
     Indication: CONTRACEPTION
     Route: 015
     Dates: start: 201211, end: 20130206
  2. SERTRALINE [Concomitant]
     Indication: ANXIETY
     Dosage: 50 MILLIGRAM DAILY;
  3. SERTRALINE [Concomitant]
     Indication: DEPRESSION

REACTIONS (3)
  - Ectopic pregnancy with contraceptive device [Recovered/Resolved]
  - Drug ineffective [Unknown]
  - Uterine haemorrhage [Not Recovered/Not Resolved]
